FAERS Safety Report 14497833 (Version 1)
Quarter: 2018Q1

REPORT INFORMATION
  Report Type: Spontaneous
  Country: FR (occurrence: FR)
  Receive Date: 20180207
  Receipt Date: 20180207
  Transmission Date: 20180509
  Serious: Yes (Life-Threatening, Hospitalization)
  Sender: FDA-Public Use
  Company Number: FR-SA-2018SA005310

PATIENT
  Sex: Male

DRUGS (1)
  1. LEMTRADA [Suspect]
     Active Substance: ALEMTUZUMAB
     Indication: MULTIPLE SCLEROSIS RELAPSE
     Route: 041
     Dates: start: 201506

REACTIONS (10)
  - Autoimmune haemolytic anaemia [Recovered/Resolved]
  - Anaemia [Recovered/Resolved]
  - Jaundice [Recovered/Resolved]
  - Haemolysis [Recovered/Resolved]
  - Erythrophagocytosis [Recovered/Resolved]
  - Chromaturia [Recovered/Resolved]
  - Haemoglobin decreased [Recovered/Resolved]
  - Tachypnoea [Recovered/Resolved]
  - Pallor [Recovered/Resolved]
  - Tachycardia [Recovered/Resolved]

NARRATIVE: CASE EVENT DATE: 2016
